FAERS Safety Report 8615699-3 (Version None)
Quarter: 2012Q3

REPORT INFORMATION
  Report Type: 
  Country: None (occurrence: None)
  Receive Date: 20120823
  Receipt Date: 20120813
  Transmission Date: 20120928
  Serious: Yes (Hospitalization, Other)
  Sender: FDA-Public Use
  Company Number: US-ELI_LILLY_AND_COMPANY-US201201000215

PATIENT
  Sex: Male

DRUGS (11)
  1. IRON [Concomitant]
     Dosage: 45 MG, QD
  2. NAMENDA [Concomitant]
     Dosage: 10 MG, BID
  3. FORTEO [Suspect]
     Indication: OSTEOPOROSIS
     Dosage: 20 UG, QD
     Dates: start: 20110901
  4. PROTONIX [Concomitant]
     Dosage: 40 MG, QD
  5. FORTEO [Suspect]
     Dosage: 20 UG, QD
  6. ARICEPT [Concomitant]
     Dosage: 10 MG, QD
  7. FORTEO [Suspect]
     Dosage: 20 UG, QD
  8. FORTEO [Suspect]
     Dosage: 20 UG, QD
  9. HYDROCODONE [Concomitant]
     Dosage: UNK, PRN
  10. VITAMIN B-12 [Concomitant]
     Dosage: 1000 MG, QD
  11. CALCIUM [Concomitant]
     Dosage: 600 MG, QD

REACTIONS (9)
  - PAIN [None]
  - PAIN IN EXTREMITY [None]
  - DEVICE DISLOCATION [None]
  - SCRATCH [None]
  - JOINT DISLOCATION [None]
  - CONTUSION [None]
  - RED BLOOD CELL COUNT DECREASED [None]
  - FALL [None]
  - HEAD INJURY [None]
